FAERS Safety Report 18838378 (Version 1)
Quarter: 2021Q1

REPORT INFORMATION
  Report Type: Spontaneous
  Country: US (occurrence: US)
  Receive Date: 20210203
  Receipt Date: 20210203
  Transmission Date: 20210419
  Serious: Yes (Hospitalization)
  Sender: FDA-Public Use
  Company Number: US-BAYER-2015-421357

PATIENT
  Age: 81 Year
  Sex: Female

DRUGS (9)
  1. XARELTO [Suspect]
     Active Substance: RIVAROXABAN
     Indication: CEREBROVASCULAR ACCIDENT PROPHYLAXIS
     Dosage: 20 MG, UNK
     Route: 048
     Dates: start: 20140401, end: 20140921
  2. IBUPROFEN. [Suspect]
     Active Substance: IBUPROFEN
     Indication: CORONARY ARTERY DISEASE
  3. METOP [Suspect]
     Active Substance: METOPROLOL TARTRATE
     Indication: ATRIAL FIBRILLATION
     Dosage: UNK
     Route: 065
     Dates: end: 201409
  4. IBUPROFEN. [Suspect]
     Active Substance: IBUPROFEN
     Indication: ATRIAL FIBRILLATION
  5. IBUPROFEN. [Suspect]
     Active Substance: IBUPROFEN
     Indication: PRODUCT USED FOR UNKNOWN INDICATION
  6. METOP [Suspect]
     Active Substance: METOPROLOL TARTRATE
     Indication: CORONARY ARTERY DISEASE
  7. XARELTO [Suspect]
     Active Substance: RIVAROXABAN
     Indication: ATRIAL FIBRILLATION
     Dosage: UNK
     Route: 048
     Dates: start: 20140925, end: 20140926
  8. BAYER LOW DOSE [Suspect]
     Active Substance: ASPIRIN
     Indication: CORONARY ARTERY DISEASE
     Dosage: 81 MG, QD
     Route: 048
     Dates: end: 201409
  9. IBUPROFEN. [Suspect]
     Active Substance: IBUPROFEN
     Indication: PRODUCT USED FOR UNKNOWN INDICATION
     Dosage: UNK
     Route: 065
     Dates: end: 201409

REACTIONS (1)
  - Large intestinal haemorrhage [Recovering/Resolving]

NARRATIVE: CASE EVENT DATE: 20140920
